FAERS Safety Report 8150364-0 (Version None)
Quarter: 2012Q1

REPORT INFORMATION
  Report Type: 
  Country: None (occurrence: None)
  Receive Date: 20120220
  Receipt Date: 20120216
  Transmission Date: 20120608
  Serious: Yes (Disabling, Other)
  Sender: FDA-Public Use
  Company Number: US-PFIZER INC-2012042593

PATIENT
  Sex: Male

DRUGS (2)
  1. LIPITOR [Suspect]
     Dosage: UNK
  2. LIPITOR [Suspect]
     Dosage: 20 MG, UNK

REACTIONS (4)
  - ARTHROPATHY [None]
  - INTERVERTEBRAL DISC DISORDER [None]
  - BACK DISORDER [None]
  - DIABETES MELLITUS [None]
